FAERS Safety Report 7549419-0 (Version None)
Quarter: 2011Q2

REPORT INFORMATION
  Report Type: 
  Country: None (occurrence: None)
  Receive Date: 20110615
  Receipt Date: 20050216
  Transmission Date: 20111010
  Serious: Yes (Death, Other)
  Sender: FDA-Public Use
  Company Number: PHFR2004GB03718

PATIENT
  Sex: Male

DRUGS (11)
  1. CLOZAPINE [Suspect]
     Indication: SCHIZOPHRENIA
     Dosage: 225MG MANE/300MG NOCTE
     Route: 048
     Dates: start: 19970821
  2. LITHIUM [Concomitant]
     Dosage: 800MG NOCTE
     Route: 065
  3. PICOLAX [Concomitant]
  4. SENOKOT /UNK/ [Concomitant]
  5. FYBOGEL [Concomitant]
     Route: 065
  6. BECLOMETHASONE DIPROPIONATE [Concomitant]
  7. VALPROATE SODIUM [Concomitant]
     Dosage: 900 MG, BID
  8. PROCYCLIDINE HYDROCHLORIDE 2MG TAB [Concomitant]
     Dosage: 5 MG, BID
     Dates: start: 20040816
  9. ALBUTEROL [Concomitant]
  10. LACTULOSE [Concomitant]
  11. DOCUSATE SODIUM [Concomitant]

REACTIONS (19)
  - VOMITING [None]
  - PNEUMONIA ASPIRATION [None]
  - BRONCHOPNEUMONIA [None]
  - HEPATOMEGALY [None]
  - EPILEPSY [None]
  - CARDIOMEGALY [None]
  - INFLAMMATION [None]
  - ABDOMINAL DISTENSION [None]
  - DYSKINESIA [None]
  - PULMONARY CONGESTION [None]
  - LOWER RESPIRATORY TRACT INFLAMMATION [None]
  - CONSTIPATION [None]
  - INTESTINAL OBSTRUCTION [None]
  - FAECALOMA [None]
  - ENDOCARDITIS [None]
  - HEPATIC CIRRHOSIS [None]
  - MITRAL VALVE DISEASE [None]
  - SUBACUTE ENDOCARDITIS [None]
  - RENAL CANCER [None]
